FAERS Safety Report 7395495-8 (Version None)
Quarter: 2011Q2

REPORT INFORMATION
  Report Type: 
  Country: None (occurrence: None)
  Receive Date: 20110405
  Receipt Date: 20110303
  Transmission Date: 20111010
  Serious: Yes (Hospitalization, Other)
  Sender: FDA-Public Use
  Company Number: US-BAYER-201024585NA

PATIENT
  Sex: Female
  Weight: 50.794 kg

DRUGS (8)
  1. CEFOXITIN [Concomitant]
     Dosage: 2 G, UNK
     Route: 048
     Dates: start: 20090331
  2. PERCOCET [Concomitant]
     Dosage: 325 MG, UNK
     Route: 048
     Dates: start: 20090331
  3. ULTRAM [Concomitant]
     Dosage: 50 MG, UNK
     Route: 048
     Dates: start: 20090331
  4. AUGMENTIN [Concomitant]
     Dosage: 875 MG, UNK
     Dates: start: 20090404
  5. YAZ [Suspect]
     Indication: ACNE
     Dosage: UNK UNK, QD
     Dates: start: 20081101, end: 20091101
  6. DARVOCET-N 50 [Concomitant]
     Indication: PAIN
     Dosage: UNK
     Route: 048
     Dates: start: 20090404
  7. OCELLA [Suspect]
     Indication: PRODUCT USED FOR UNKNOWN INDICATION
     Dosage: UNK
     Dates: start: 20081101, end: 20091101
  8. DILAUDID [Concomitant]
     Dosage: 0.2 MG, UNK
     Dates: start: 20090331

REACTIONS (4)
  - CHOLECYSTITIS [None]
  - ABDOMINAL PAIN UPPER [None]
  - CHOLELITHIASIS [None]
  - ABDOMINAL PAIN [None]
